FAERS Safety Report 16533193 (Version 4)
Quarter: 2024Q4

REPORT INFORMATION
  Report Type: Other
  Country: CA (occurrence: CA)
  Receive Date: 20190704
  Receipt Date: 20241128
  Transmission Date: 20250114
  Serious: Yes (Hospitalization, Other)
  Sender: APOTEX
  Company Number: CA-APOTEX-2019AP017396

PATIENT
  Age: 67 Year
  Sex: Female

DRUGS (23)
  1. GEMCITABINE [Suspect]
     Active Substance: GEMCITABINE
     Indication: Pancreatic carcinoma
     Dosage: 1320 MG,  THRICE IN 28 DAYS
     Route: 041
  2. GEMCITABINE [Suspect]
     Active Substance: GEMCITABINE
     Dosage: 1320 MG,  THRICE IN 28 DAYS
     Route: 041
  3. TREMELIMUMAB [Suspect]
     Active Substance: TREMELIMUMAB
     Indication: Pancreatic carcinoma
     Dosage: 75 MG, , 1 EVERY 4 WEEKS
     Route: 041
  4. TREMELIMUMAB [Suspect]
     Active Substance: TREMELIMUMAB
     Dosage: 75 MG, 1 EVERY 4 WEEKS
     Route: 041
  5. TREMELIMUMAB [Suspect]
     Active Substance: TREMELIMUMAB
     Dosage: 75 MILLIGRAM, Q.M.T.
     Route: 042
  6. DURVALUMAB [Suspect]
     Active Substance: DURVALUMAB
     Indication: Pancreatic carcinoma
     Dosage: 1500 MILLIGRAM, Q.M.T.
     Route: 041
  7. DURVALUMAB [Suspect]
     Active Substance: DURVALUMAB
     Dosage: 1500 MILLIGRAM, Q.M.T.
     Route: 042
  8. ABRAXANE [Suspect]
     Active Substance: PACLITAXEL
     Indication: Pancreatic carcinoma
     Dosage: 165 MG, THRICE IN 28 DAYS
     Route: 041
  9. ABRAXANE [Suspect]
     Active Substance: PACLITAXEL
     Dosage: 165 MG, THRICE IN 28 DAYS
     Route: 041
  10. ABRAXANE [Suspect]
     Active Substance: PACLITAXEL
     Dosage: UNK
     Route: 042
  11. DURVALUMAB [Suspect]
     Active Substance: DURVALUMAB
     Indication: Pancreatic carcinoma
     Dosage: 1500 MG, 1 EVERY 4 WEEKS
     Route: 041
  12. DURVALUMAB [Suspect]
     Active Substance: DURVALUMAB
     Dosage: 1500 MG, 1 EVERY 4 WEEKS
     Route: 041
  13. DURVALUMAB [Suspect]
     Active Substance: DURVALUMAB
     Dosage: 1500 MG, 1 EVERY 4 WEEKS
     Route: 041
  14. SENOKOT [Concomitant]
     Active Substance: SENNOSIDES
     Indication: Constipation
     Dosage: UNK
     Route: 065
  15. ONDANSETRON [Concomitant]
     Active Substance: ONDANSETRON
     Indication: Prophylaxis of nausea and vomiting
     Route: 065
  16. HYDROMORPHONE HYDROCHLORIDE [Concomitant]
     Active Substance: HYDROMORPHONE HYDROCHLORIDE
     Indication: Gastrointestinal pain
     Dosage: UNK
     Route: 065
  17. HYDROMORPHONE HYDROCHLORIDE [Concomitant]
     Active Substance: HYDROMORPHONE HYDROCHLORIDE
     Indication: Abdominal pain
  18. HYDROMORPHONE [Concomitant]
     Active Substance: HYDROMORPHONE
     Indication: Gastrointestinal pain
     Dosage: UNK
     Route: 065
  19. HYDROMORPHONE [Concomitant]
     Active Substance: HYDROMORPHONE
     Indication: Abdominal pain
  20. CANNABIS SATIVA FLOWERING TOP [Concomitant]
     Active Substance: CANNABIS SATIVA FLOWERING TOP
     Indication: Appetite disorder
     Dosage: UNK
     Route: 065
  21. DALTEPARIN SODIUM [Concomitant]
     Active Substance: DALTEPARIN SODIUM
     Indication: Thrombosis
     Dosage: UNK
     Route: 065
  22. DALTEPARIN SODIUM [Concomitant]
     Active Substance: DALTEPARIN SODIUM
     Indication: Embolism
  23. DEXAMETHASONE [Concomitant]
     Active Substance: DEXAMETHASONE
     Indication: Prophylaxis of nausea and vomiting
     Dosage: UNK
     Route: 065

REACTIONS (4)
  - Pericardial effusion [Recovered/Resolved]
  - Pleural effusion [Recovered/Resolved]
  - Insomnia [Recovered/Resolved]
  - Dyspnoea [Recovered/Resolved]
